FAERS Safety Report 17623145 (Version 8)
Quarter: 2021Q2

REPORT INFORMATION
  Report Type: Report from Study
  Country: US (occurrence: US)
  Receive Date: 20200403
  Receipt Date: 20210503
  Transmission Date: 20210716
  Serious: Yes (Hospitalization, Other)
  Sender: FDA-Public Use
  Company Number: US-BIOVITRUM-2019US3385

PATIENT
  Sex: Female

DRUGS (2)
  1. KINERET [Suspect]
     Active Substance: ANAKINRA
     Indication: RHEUMATOID ARTHRITIS
     Dates: start: 20190325
  2. KINERET [Suspect]
     Active Substance: ANAKINRA
     Route: 058
     Dates: start: 20190329

REACTIONS (23)
  - Condition aggravated [Unknown]
  - Urinary tract infection [Recovered/Resolved]
  - Musculoskeletal stiffness [Unknown]
  - Emotional disorder [Unknown]
  - Ovarian cyst [Unknown]
  - Vaginal infection [Unknown]
  - Pain [Unknown]
  - Influenza [Recovered/Resolved]
  - Injection site pruritus [Unknown]
  - Injection site induration [Unknown]
  - Back pain [Unknown]
  - Malaise [Unknown]
  - Skin infection [Unknown]
  - Weight decreased [Unknown]
  - Joint stiffness [Unknown]
  - Joint range of motion decreased [Unknown]
  - Injection site pain [Unknown]
  - Alopecia [Unknown]
  - Asthenia [Unknown]
  - Product dose omission issue [Recovered/Resolved]
  - COVID-19 [Unknown]
  - Joint swelling [Unknown]
  - Abdominal pain [Unknown]
